FAERS Safety Report 7176810-7 (Version None)
Quarter: 2010Q4

REPORT INFORMATION
  Report Type: 
  Country: None (occurrence: None)
  Receive Date: 20101220
  Receipt Date: 20101209
  Transmission Date: 20110411
  Serious: Yes (Other)
  Sender: FDA-Public Use
  Company Number: DE-B.I. PHARMACEUTICALS,INC./RIDGEFIELD-2010-DE-06050DE

PATIENT
  Sex: Female

DRUGS (4)
  1. VIRAMUNE [Suspect]
     Indication: HIV INFECTION
     Dosage: 400 MG
     Route: 048
     Dates: start: 20000719
  2. VIRAMUNE [Suspect]
     Dates: start: 20080828
  3. EPIVIR [Concomitant]
     Indication: HIV INFECTION
     Dosage: 300 MG
     Route: 048
     Dates: start: 20000719
  4. RETROVIR [Concomitant]
     Indication: HIV INFECTION
     Dosage: 400 MG
     Route: 048
     Dates: start: 20080827

REACTIONS (1)
  - CAESAREAN SECTION [None]
